FAERS Safety Report 20479884 (Version 1)
Quarter: 2022Q1

REPORT INFORMATION
  Report Type: Spontaneous
  Country: NL (occurrence: None)
  Receive Date: 20220216
  Receipt Date: 20220216
  Transmission Date: 20220423
  Serious: Yes (Hospitalization)
  Sender: FDA-Public Use
  Company Number: 2022A063775

PATIENT
  Sex: Female
  Weight: 63 kg

DRUGS (7)
  1. TICAGRELOR [Suspect]
     Active Substance: TICAGRELOR
     Indication: Acute myocardial infarction
     Route: 065
     Dates: start: 20220112, end: 20220128
  2. DOXAZOSIN [Concomitant]
     Active Substance: DOXAZOSIN MESYLATE
     Dosage: MODIFIED-RELEASE TABLET, 8 MG (MILLIGRAMS)
  3. ROSUVASTATIN [Concomitant]
     Active Substance: ROSUVASTATIN
     Dosage: TABLET, 10 MG (MILLIGRAM)
  4. AMLODIPINE [Concomitant]
     Active Substance: AMLODIPINE BESYLATE
     Dosage: TABLET, 10 MG (MILLIGRAM)
  5. METOPROLOL [Concomitant]
     Active Substance: METOPROLOL
     Dosage: MODIFIED-RELEASE TABLET, 25 MG (MILLIGRAMS)
  6. ALFACALCIDOL [Concomitant]
     Active Substance: ALFACALCIDOL
     Dosage: CAPSULE, 0.25 UG (MICROGRAM)
  7. ASPIRIN [Concomitant]
     Active Substance: ASPIRIN
     Dosage: TABLET, 80 MG (MILLIGRAM)

REACTIONS (4)
  - Eructation [Not Recovered/Not Resolved]
  - Vomiting [Not Recovered/Not Resolved]
  - Paraesthesia [Unknown]
  - Nausea [Not Recovered/Not Resolved]
